FAERS Safety Report 5793479-4 (Version None)
Quarter: 2008Q2

REPORT INFORMATION
  Report Type: 
  Country: None (occurrence: None)
  Receive Date: 20080627
  Receipt Date: 20080620
  Transmission Date: 20081010
  Serious: Yes (Hospitalization)
  Sender: FDA-Public Use
  Company Number: GB-JNJFOC-20080605207

PATIENT
  Age: 26 Year
  Sex: Female

DRUGS (5)
  1. NORGESTIMATE AND ETHINYL ESTRADIOL [Suspect]
     Indication: DRUG USE FOR UNKNOWN INDICATION
     Route: 048
  2. LANSOPRAZOLE [Concomitant]
  3. PREDNISOLONE [Concomitant]
  4. NYSTATIN [Concomitant]
  5. ALENDRONIC ACID [Concomitant]

REACTIONS (3)
  - MENSTRUATION DELAYED [None]
  - NEPHROTIC SYNDROME [None]
  - WITHDRAWAL BLEED [None]
